FAERS Safety Report 17179376 (Version 4)
Quarter: 2020Q1

REPORT INFORMATION
  Report Type: Spontaneous
  Country: SI (occurrence: SI)
  Receive Date: 20191219
  Receipt Date: 20200205
  Transmission Date: 20200409
  Serious: Yes (Death, Other)
  Sender: FDA-Public Use
  Company Number: SI-PFIZER INC-2019544290

PATIENT
  Age: 79 Year
  Sex: Male

DRUGS (4)
  1. ALTEPLASE. [Concomitant]
     Active Substance: ALTEPLASE
     Indication: OBSTRUCTIVE SHOCK
     Dosage: 100 MG, UNK (MG/2 HOURS)
  2. HEPARIN [Concomitant]
     Active Substance: HEPARIN SODIUM
     Indication: OBSTRUCTIVE SHOCK
     Dosage: UNK
  3. VANCOMYCIN HCL [Suspect]
     Active Substance: VANCOMYCIN HYDROCHLORIDE
     Indication: ASPIRATION
     Dosage: UNK
  4. IMIPENEM AND CILASTATIN [Suspect]
     Active Substance: CILASTATIN SODIUM\IMIPENEM
     Indication: ASPIRATION
     Dosage: UNK

REACTIONS (3)
  - Septic shock [Fatal]
  - Respiratory failure [Fatal]
  - Circulatory collapse [Fatal]
